FAERS Safety Report 10517049 (Version 1)
Quarter: 2014Q4

REPORT INFORMATION
  Report Type: Spontaneous
  Country: FR (occurrence: DE)
  Receive Date: 20141014
  Receipt Date: 20141014
  Transmission Date: 20150528
  Serious: Yes (Death)
  Sender: FDA-Public Use
  Company Number: FR-MYLANLABS-2014M1007382

PATIENT

DRUGS (11)
  1. ROCALTROL [Concomitant]
     Active Substance: CALCITRIOL
  2. POTASSIUM CHLORIDE. [Concomitant]
     Active Substance: POTASSIUM CHLORIDE
  3. FERROUS GLYCINE SULFATE [Concomitant]
     Active Substance: FERROUS SULFATE\GLYCINE
  4. FERROSANOL [Concomitant]
     Active Substance: FERROUS GLUCONATE
  5. PHOSPHORUS [Concomitant]
     Active Substance: PHOSPHORUS
  6. MAGNESIUM TRISILICATE [Concomitant]
     Active Substance: MAGNESIUM TRISILICATE
  7. MERCAPTAMINE BITARTRATE [Suspect]
     Active Substance: CYSTEAMINE
     Indication: CYSTINOSIS
     Dosage: 500 MG, QD
     Route: 048
     Dates: end: 20020306
  8. POTASSIUM CITRATE. [Concomitant]
     Active Substance: POTASSIUM CITRATE
  9. L-CARNITIN                         /00878601/ [Concomitant]
  10. L-THYROXIN [Concomitant]
     Active Substance: LEVOTHYROXINE SODIUM
  11. GENOTROPIN [Concomitant]
     Active Substance: SOMATROPIN

REACTIONS (3)
  - Methaemoglobinaemia [Fatal]
  - Multi-organ failure [Fatal]
  - Haemolysis [Fatal]

NARRATIVE: CASE EVENT DATE: 20020306
